FAERS Safety Report 24961517 (Version 1)
Quarter: 2025Q1

REPORT INFORMATION
  Report Type: Spontaneous
  Country: GB (occurrence: None)
  Receive Date: 20250209
  Receipt Date: 20250209
  Transmission Date: 20250408
  Serious: Yes (Life-Threatening, Hospitalization, Disabling, Other)
  Sender: FDA-CTU
  Company Number: None

PATIENT
  Sex: Female

DRUGS (7)
  1. HALOPERIDOL [Suspect]
     Active Substance: HALOPERIDOL
  2. QUETIAPINE [Suspect]
     Active Substance: QUETIAPINE
  3. SERTRALINE [Suspect]
     Active Substance: SERTRALINE HYDROCHLORIDE
  4. ARIPIPRAZOLE [Suspect]
     Active Substance: ARIPIPRAZOLE
  5. LORAZEPAM [Concomitant]
     Active Substance: LORAZEPAM
  6. PROCYCLIDINE [Concomitant]
     Active Substance: PROCYCLIDINE
  7. OLOPATADINE [Concomitant]
     Active Substance: OLOPATADINE

REACTIONS (8)
  - Product communication issue [None]
  - Victim of abuse [None]
  - Eye allergy [None]
  - Product complaint [None]
  - Thrombosis [None]
  - Scan abnormal [None]
  - Toxicity to various agents [None]
  - Product use in unapproved indication [None]
